FAERS Safety Report 8078152-4 (Version None)
Quarter: 2012Q1

REPORT INFORMATION
  Report Type: 
  Country: None (occurrence: None)
  Receive Date: 20120127
  Receipt Date: 20110117
  Transmission Date: 20120608
  Serious: No
  Sender: FDA-Public Use
  Company Number: US-ABBOTT-10P-163-0690571-00

PATIENT
  Age: 70 Year
  Sex: Male

DRUGS (9)
  1. ZANTAC [Concomitant]
     Indication: PRODUCT USED FOR UNKNOWN INDICATION
     Route: 048
  2. METFORMIN HCL [Concomitant]
     Indication: DIABETES MELLITUS
     Route: 048
  3. LIPITOR [Concomitant]
     Indication: BLOOD CHOLESTEROL ABNORMAL
     Route: 048
  4. ZETIA [Concomitant]
     Indication: BLOOD CHOLESTEROL ABNORMAL
     Route: 048
  5. ZOLOFT [Concomitant]
     Indication: NERVOUSNESS
     Route: 048
  6. FISH OIL [Concomitant]
     Indication: PRODUCT USED FOR UNKNOWN INDICATION
  7. HUMIRA [Suspect]
     Indication: RHEUMATOID ARTHRITIS
     Dates: start: 20100831
  8. ASPIRIN [Concomitant]
     Indication: PRODUCT USED FOR UNKNOWN INDICATION
     Route: 048
  9. CARBIDOPA AND LEVODOPA [Concomitant]
     Indication: PARKINSON'S DISEASE
     Route: 048

REACTIONS (4)
  - ILL-DEFINED DISORDER [None]
  - ARTHRALGIA [None]
  - HYPERSOMNIA [None]
  - MEMORY IMPAIRMENT [None]
